FAERS Safety Report 8423236-1 (Version None)
Quarter: 2012Q2

REPORT INFORMATION
  Report Type: 
  Country: None (occurrence: None)
  Receive Date: 20120608
  Receipt Date: 20120531
  Transmission Date: 20120825
  Serious: Yes (Other)
  Sender: FDA-Public Use
  Company Number: JP-JNJFOC-20120602001

PATIENT
  Age: 59 Year
  Sex: Male
  Weight: 63 kg

DRUGS (10)
  1. REMICADE [Suspect]
     Dosage: TOTAL OF 7 DOSES
     Route: 042
     Dates: start: 20110222
  2. REMICADE [Suspect]
     Route: 042
     Dates: start: 20101216
  3. REMICADE [Suspect]
     Route: 042
     Dates: start: 20100624
  4. CLOBETASOL PROPIONATE [Concomitant]
     Indication: PSORIASIS
     Dates: end: 20101110
  5. REMICADE [Suspect]
     Indication: PSORIASIS
     Route: 042
     Dates: start: 20101014
  6. REMICADE [Suspect]
     Route: 042
     Dates: start: 20100819
  7. REMICADE [Suspect]
     Route: 042
     Dates: start: 20100512
  8. ANTEBATE [Concomitant]
     Indication: PSORIASIS
     Dates: start: 20101111
  9. CYCLOSPORINE [Concomitant]
     Indication: PSORIASIS
     Route: 048
  10. REMICADE [Suspect]
     Route: 042
     Dates: start: 20100527

REACTIONS (1)
  - BLADDER TRANSITIONAL CELL CARCINOMA [None]
